FAERS Safety Report 5405530-1 (Version None)
Quarter: 2007Q3

REPORT INFORMATION
  Report Type: 
  Country: None (occurrence: None)
  Receive Date: 20070803
  Receipt Date: 20070726
  Transmission Date: 20080115
  Serious: Yes (Disabling, Other)
  Sender: FDA-Public Use
  Company Number: JP-MERCK-0707USA05024

PATIENT
  Age: 72 Year
  Sex: Female

DRUGS (3)
  1. FOSAMAX [Suspect]
     Indication: OSTEOPOROSIS
     Route: 048
     Dates: start: 20040101
  2. [THERAPY UNSPECIFIED] [Concomitant]
     Route: 065
  3. CHOLECALCIFEROL AND VITAMIN A [Concomitant]
     Route: 065

REACTIONS (3)
  - OSTEOMYELITIS [None]
  - PURULENT DISCHARGE [None]
  - SWELLING [None]
